FAERS Safety Report 12958886 (Version 1)
Quarter: 2016Q4

REPORT INFORMATION
  Report Type: Spontaneous
  Country: US (occurrence: US)
  Receive Date: 20161117
  Receipt Date: 20161117
  Transmission Date: 20170207
  Serious: Yes (Hospitalization)
  Sender: FDA-Public Use
  Company Number: None

PATIENT
  Age: 69 Year
  Sex: Male

DRUGS (21)
  1. FLUCONAZOLE. [Suspect]
     Active Substance: FLUCONAZOLE
     Indication: PROPHYLAXIS
     Route: 048
     Dates: start: 20161019, end: 20161019
  2. DAPTOMYCIN. [Concomitant]
     Active Substance: DAPTOMYCIN
  3. OXYCODONE [Concomitant]
     Active Substance: OXYCODONE
  4. POTASSIUM PHOSPHATE [Concomitant]
     Active Substance: POTASSIUM PHOSPHATE
  5. ACETAMINOPHEN. [Concomitant]
     Active Substance: ACETAMINOPHEN
  6. DIPHENHYDRAMINE. [Concomitant]
     Active Substance: DIPHENHYDRAMINE
  7. GUAFENESIN [Concomitant]
     Active Substance: GUAIFENESIN
  8. MUPIROCIN. [Concomitant]
     Active Substance: MUPIROCIN
  9. VALACYCLOVIR [Concomitant]
     Active Substance: VALACYCLOVIR HYDROCHLORIDE
  10. METOPROLOL TARTRATE. [Concomitant]
     Active Substance: METOPROLOL TARTRATE
  11. METRONIDAZOLE. [Concomitant]
     Active Substance: METRONIDAZOLE
  12. ASCORBIC ACID. [Concomitant]
     Active Substance: ASCORBIC ACID
  13. NORMAL SALINE SPRAY [Concomitant]
  14. AZTREONAM. [Concomitant]
     Active Substance: AZTREONAM
  15. CLOBETASOL [Concomitant]
     Active Substance: CLOBETASOL
  16. MAGNESIUM OXIDE. [Concomitant]
     Active Substance: MAGNESIUM OXIDE
  17. MORPHINE [Concomitant]
     Active Substance: MORPHINE
  18. FILGRASTIM [Concomitant]
     Active Substance: FILGRASTIM
  19. LANSOPRAZOLE. [Concomitant]
     Active Substance: LANSOPRAZOLE
  20. FEXOFENADINE [Concomitant]
     Active Substance: FEXOFENADINE\FEXOFENADINE HYDROCHLORIDE
  21. MYSTATIN ORAL LIQUID [Concomitant]

REACTIONS (3)
  - Chills [None]
  - Pruritus [None]
  - Burning sensation [None]

NARRATIVE: CASE EVENT DATE: 20160919
